FAERS Safety Report 18572980 (Version 2)
Quarter: 2020Q4

REPORT INFORMATION
  Report Type: Report from Study
  Country: CO (occurrence: CO)
  Receive Date: 20201203
  Receipt Date: 20201211
  Transmission Date: 20210114
  Serious: Yes (Other)
  Sender: FDA-Public Use
  Company Number: CO-TAKEDA-2019TUS043666

PATIENT
  Age: 40 Year
  Sex: Male
  Weight: 52 kg

DRUGS (2)
  1. VEDOLIZUMAB [Suspect]
     Active Substance: VEDOLIZUMAB
     Dosage: 300 MILLIGRAM, Q4WEEKS
     Route: 042
     Dates: start: 20200727
  2. VEDOLIZUMAB [Suspect]
     Active Substance: VEDOLIZUMAB
     Indication: CROHN^S DISEASE
     Dosage: 300 MILLIGRAM
     Route: 042
     Dates: start: 20180716

REACTIONS (8)
  - Weight decreased [Unknown]
  - Arthralgia [Unknown]
  - Chills [Recovered/Resolved]
  - Decreased appetite [Not Recovered/Not Resolved]
  - Weight increased [Unknown]
  - Pyrexia [Recovered/Resolved]
  - Crohn^s disease [Unknown]
  - Off label use [Unknown]

NARRATIVE: CASE EVENT DATE: 201901
